FAERS Safety Report 12898167 (Version 1)
Quarter: 2016Q4

REPORT INFORMATION
  Report Type: Spontaneous
  Country: US (occurrence: US)
  Receive Date: 20161031
  Receipt Date: 20161031
  Transmission Date: 20170207
  Serious: No
  Sender: FDA-Public Use
  Company Number: US-AKRIMAX-TIR-2016-1034

PATIENT
  Age: 63 Year
  Sex: Female
  Weight: 81.27 kg

DRUGS (10)
  1. TIROSINT [Suspect]
     Active Substance: LEVOTHYROXINE SODIUM
     Indication: AUTOIMMUNE THYROIDITIS
     Dosage: ONCE DAILY
     Route: 048
     Dates: start: 201607
  2. TIROSINT [Suspect]
     Active Substance: LEVOTHYROXINE SODIUM
     Indication: PARATHYROID TUMOUR
     Dosage: ONCE DAILY
     Route: 048
     Dates: start: 20160912
  3. TIROSINT [Suspect]
     Active Substance: LEVOTHYROXINE SODIUM
     Indication: THYROIDECTOMY
  4. TIROSINT [Suspect]
     Active Substance: LEVOTHYROXINE SODIUM
     Indication: THYROIDECTOMY
  5. TIROSINT [Suspect]
     Active Substance: LEVOTHYROXINE SODIUM
     Indication: AUTOIMMUNE THYROIDITIS
     Dosage: ONCE DAILY
     Route: 048
  6. TIROSINT [Suspect]
     Active Substance: LEVOTHYROXINE SODIUM
     Indication: AUTOIMMUNE THYROIDITIS
     Dosage: ONCE DAILY
     Route: 048
     Dates: start: 201608, end: 20160910
  7. ESTRADIOL. [Concomitant]
     Active Substance: ESTRADIOL
     Indication: PRODUCT USED FOR UNKNOWN INDICATION
     Dosage: APPLIED ON ARMS AND THIGHS
  8. TIROSINT [Suspect]
     Active Substance: LEVOTHYROXINE SODIUM
     Indication: THYROIDECTOMY
  9. TIROSINT [Suspect]
     Active Substance: LEVOTHYROXINE SODIUM
     Indication: PARATHYROID TUMOUR
  10. TIROSINT [Suspect]
     Active Substance: LEVOTHYROXINE SODIUM
     Indication: PARATHYROID TUMOUR

REACTIONS (8)
  - Diarrhoea [Unknown]
  - Constipation [Unknown]
  - Sinus disorder [Unknown]
  - Abdominal discomfort [Unknown]
  - Nausea [Unknown]
  - Thyroid function test abnormal [Unknown]
  - Rash [Unknown]
  - Muscle spasms [Unknown]

NARRATIVE: CASE EVENT DATE: 2016
